FAERS Safety Report 11559281 (Version 2)
Quarter: 2015Q3

REPORT INFORMATION
  Report Type: Spontaneous
  Country: US (occurrence: US)
  Receive Date: 20150928
  Receipt Date: 20150928
  Transmission Date: 20151125
  Serious: Yes (Hospitalization, Other)
  Sender: FDA-Public Use
  Company Number: CHPA2015US011222

PATIENT
  Age: 88 Year
  Sex: Female

DRUGS (3)
  1. LIBRIUM [Concomitant]
     Active Substance: CHLORDIAZEPOXIDE HYDROCHLORIDE
     Indication: DEPRESSION
     Dosage: UNK
     Route: 065
  2. DICLOFENAC [Suspect]
     Active Substance: DICLOFENAC
     Dosage: 1 DF, UNK
     Route: 048
  3. DICLOFENAC [Suspect]
     Active Substance: DICLOFENAC
     Indication: ARTHRITIS
     Dosage: 1 DF, UNK
     Route: 048
     Dates: start: 2013, end: 2013

REACTIONS (7)
  - Diverticulitis [Recovered/Resolved]
  - Large intestinal haemorrhage [Recovered/Resolved]
  - Nervousness [Recovered/Resolved]
  - Abdominal pain upper [Recovered/Resolved]
  - Dyspepsia [Recovered/Resolved]
  - Renal failure [Recovering/Resolving]
  - Renal cancer [Recovering/Resolving]

NARRATIVE: CASE EVENT DATE: 2013
